FAERS Safety Report 16288287 (Version 3)
Quarter: 2019Q3

REPORT INFORMATION
  Report Type: Spontaneous
  Country: FR (occurrence: FR)
  Receive Date: 20190508
  Receipt Date: 20190715
  Transmission Date: 20191004
  Serious: Yes (Life-Threatening, Other)
  Sender: FDA-Public Use
  Company Number: FR-CELLTRION INC.-2019FR020550

PATIENT

DRUGS (10)
  1. RITUXIMAB (UNKNOWN) [Suspect]
     Active Substance: RITUXIMAB
     Indication: CENTRAL NERVOUS SYSTEM LYMPHOMA
     Dosage: 375 MG/M2, RECEIVED SIX CYCLES AT D1 AND D15(ONE CYCLE WAS OF 28 DAYS), FOR R-GEMOX REGIMEN
     Route: 042
     Dates: start: 201302, end: 201708
  2. VINCRISTINE [Concomitant]
     Active Substance: VINCRISTINE
     Indication: CENTRAL NERVOUS SYSTEM LYMPHOMA
     Route: 065
  3. PROCARBAZINE [Concomitant]
     Active Substance: PROCARBAZINE
     Indication: CENTRAL NERVOUS SYSTEM LYMPHOMA
     Dosage: AS A FIRST-LINE THERAPY
     Route: 065
  4. GEMCITABINE. [Suspect]
     Active Substance: GEMCITABINE
     Indication: CENTRAL NERVOUS SYSTEM LYMPHOMA
     Dosage: 1000 MG/M2, RECEIVED SIX CYCLES AT D1 AND D15(ONE CYCLE WAS OF 28 DAYS), FOR R-GEMOX REGIMEN
     Route: 065
  5. IFOSFAMIDE. [Concomitant]
     Active Substance: IFOSFAMIDE
  6. CARBOPLATINE [Concomitant]
     Active Substance: CARBOPLATIN
  7. ETOPOSIDE. [Concomitant]
     Active Substance: ETOPOSIDE
  8. ARACYTINE [Concomitant]
     Active Substance: CYTARABINE
     Indication: CENTRAL NERVOUS SYSTEM LYMPHOMA
     Dosage: AS A FIRST-LINE THERAPY
     Route: 065
  9. OXALIPLATINE [Suspect]
     Active Substance: OXALIPLATIN
     Indication: CENTRAL NERVOUS SYSTEM LYMPHOMA
     Dosage: 100 MG/M2, RECEIVED SIX CYCLES AT AT D1 AND D15(ONE CYCLE WAS OF 28 DAYS), FOR R-GEMOX REGIMEN
  10. METHOTREXATE. [Concomitant]
     Active Substance: METHOTREXATE
     Indication: CENTRAL NERVOUS SYSTEM LYMPHOMA
     Dosage: AS A FIRST-LINE THERAPY
     Route: 065

REACTIONS (3)
  - Thrombocytopenia [Unknown]
  - Lymphopenia [Unknown]
  - Neuropathy peripheral [Unknown]
